FAERS Safety Report 4398224-5 (Version None)
Quarter: 2004Q3

REPORT INFORMATION
  Report Type: 
  Country: None (occurrence: None)
  Receive Date: 20040713
  Receipt Date: 20040628
  Transmission Date: 20050211
  Serious: Yes (Hospitalization)
  Sender: FDA-Public Use
  Company Number: 237874

PATIENT
  Sex: Female

DRUGS (1)
  1. ACTIVELLE [Suspect]
     Indication: MENOPAUSAL SYMPTOMS
     Dosage: 1 TAB, PER ORAL
     Route: 048
     Dates: start: 19990601, end: 20040101

REACTIONS (1)
  - ENDOMETRIAL CANCER [None]
